FAERS Safety Report 21727268 (Version 1)
Quarter: 2022Q4

REPORT INFORMATION
  Report Type: Spontaneous
  Country: PT (occurrence: PT)
  Receive Date: 20221214
  Receipt Date: 20221214
  Transmission Date: 20230113
  Serious: Yes (Disabling)
  Sender: FDA-Public Use
  Company Number: None

PATIENT
  Age: 73 Year
  Sex: Female

DRUGS (2)
  1. OXALIPLATIN [Suspect]
     Active Substance: OXALIPLATIN
     Indication: Rectal neoplasm
     Dosage: STRENGTH- 5 MG
     Dates: start: 20220809, end: 20220809
  2. CAPECITABINE [Concomitant]
     Active Substance: CAPECITABINE

REACTIONS (4)
  - Eye movement disorder [Recovered/Resolved]
  - Eyelid disorder [Recovered/Resolved]
  - Paraesthesia [Recovered/Resolved]
  - Dyspnoea [Recovered/Resolved]

NARRATIVE: CASE EVENT DATE: 20220809
